FAERS Safety Report 7118945-0 (Version None)
Quarter: 2010Q4

REPORT INFORMATION
  Report Type: 
  Country: None (occurrence: None)
  Receive Date: 20101123
  Receipt Date: 20101119
  Transmission Date: 20110411
  Serious: Yes (Other)
  Sender: FDA-Public Use
  Company Number: US-PFIZER INC-2010153684

PATIENT
  Sex: Female
  Weight: 77.098 kg

DRUGS (10)
  1. COLESTID [Suspect]
     Indication: IRRITABLE BOWEL SYNDROME
     Dosage: 1 G, 2X/DAY
     Route: 048
     Dates: start: 20101001
  2. COLESTID [Suspect]
     Indication: DIARRHOEA
  3. LEVOXYL [Concomitant]
     Dosage: 0.075 MG, UNK
  4. TRIAMTERENE AND HYDROCHLOROTHIAZIDE [Concomitant]
     Dosage: UNK
  5. MUCINEX [Concomitant]
     Dosage: UNK
  6. CLARITIN [Concomitant]
     Dosage: UNK
  7. ASPIRIN [Concomitant]
     Dosage: UNK
  8. OMEPRAZOLE [Concomitant]
     Dosage: UNK
  9. VITAMINS [Concomitant]
     Dosage: UNK, DAILY
  10. CALCIUM [Concomitant]
     Dosage: UNK

REACTIONS (3)
  - CONSTIPATION [None]
  - DIARRHOEA [None]
  - HAEMATOCHEZIA [None]
